FAERS Safety Report 15777858 (Version 1)
Quarter: 2018Q4

REPORT INFORMATION
  Report Type: Report from Study
  Country: JP (occurrence: JP)
  Receive Date: 20181231
  Receipt Date: 20181231
  Transmission Date: 20190205
  Serious: Yes (Other)
  Sender: FDA-Public Use
  Company Number: JP-009507513-1811JPN001089J

PATIENT
  Age: 67 Year
  Sex: Female
  Weight: 56 kg

DRUGS (3)
  1. VIEKIRAX [Suspect]
     Active Substance: OMBITASVIR\PARITAPREVIR\RITONAVIR
     Indication: CHRONIC HEPATITIS C
     Dosage: 2 DOSAGE FORM, QD
     Route: 048
     Dates: start: 20170720, end: 20171108
  2. RIBAVIRIN. [Suspect]
     Active Substance: RIBAVIRIN
     Dosage: 400 MG, BID
     Route: 048
     Dates: start: 20170928, end: 20171108
  3. RIBAVIRIN. [Suspect]
     Active Substance: RIBAVIRIN
     Indication: CHRONIC HEPATITIS C
     Dosage: 600 MG, BID
     Route: 048
     Dates: start: 20170720, end: 20170927

REACTIONS (3)
  - Anaemia [Recovered/Resolved]
  - Hyperbilirubinaemia [Recovered/Resolved]
  - Pruritus [Recovered/Resolved]

NARRATIVE: CASE EVENT DATE: 20170721
